FAERS Safety Report 7211770-1 (Version None)
Quarter: 2011Q1

REPORT INFORMATION
  Report Type: 
  Country: None (occurrence: None)
  Receive Date: 20110105
  Receipt Date: 20101223
  Transmission Date: 20110831
  Serious: Yes (Death, Other)
  Sender: FDA-Public Use
  Company Number: DE-WATSON-2010-16590

PATIENT
  Age: 77 Year
  Sex: Male

DRUGS (3)
  1. OXAZEPAM [Suspect]
     Indication: RESTLESSNESS
     Dosage: 140 MG, DAILY
  2. LEVOMEPROMAZINE [Suspect]
     Indication: RESTLESSNESS
     Dosage: 50 MG, DAILY
  3. BUPROPION HCL [Suspect]
     Indication: DEPRESSION
     Dosage: 300 MG, DAILY

REACTIONS (4)
  - DRUG INTERACTION [None]
  - AKATHISIA [None]
  - RESTLESSNESS [None]
  - COMPLETED SUICIDE [None]
